FAERS Safety Report 4625352-9 (Version None)
Quarter: 2005Q2

REPORT INFORMATION
  Report Type: 
  Country: None (occurrence: None)
  Receive Date: 20050401
  Receipt Date: 20050325
  Transmission Date: 20051028
  Serious: Yes (Hospitalization)
  Sender: FDA-Public Use
  Company Number: FR-GLAXOSMITHKLINE-B0375879A

PATIENT
  Age: 42 Year
  Sex: Male

DRUGS (5)
  1. ZIAGEN [Suspect]
     Indication: HIV INFECTION
     Dosage: 1TAB PER DAY
     Route: 048
     Dates: end: 20050215
  2. RETROVIR [Suspect]
     Indication: HIV INFECTION
     Dosage: 300MG TWICE PER DAY
     Route: 048
     Dates: end: 20050215
  3. NORVIR [Suspect]
     Indication: HIV INFECTION
     Dosage: 1CAP TWICE PER DAY
     Route: 048
     Dates: start: 20040823, end: 20050215
  4. REYATAZ [Suspect]
     Indication: HIV INFECTION
     Dosage: 1CAP TWICE PER DAY
     Route: 048
     Dates: start: 20040823, end: 20050215
  5. BACTRIM [Concomitant]
     Dosage: 1TAB PER DAY
     Route: 048

REACTIONS (4)
  - BLOOD ALKALINE PHOSPHATASE INCREASED [None]
  - BLOOD BILIRUBIN [None]
  - GAMMA-GLUTAMYLTRANSFERASE INCREASED [None]
  - TRANSAMINASES INCREASED [None]
